FAERS Safety Report 5281966-7 (Version None)
Quarter: 2007Q1

REPORT INFORMATION
  Report Type: 
  Country: None (occurrence: None)
  Receive Date: 20070330
  Receipt Date: 20070320
  Transmission Date: 20070707
  Serious: Yes (Other)
  Sender: FDA-Public Use
  Company Number: JP-ELI_LILLY_AND_COMPANY-JP200612002875

PATIENT
  Age: 62 Year
  Sex: Male

DRUGS (1)
  1. HUMALOG MIX 75/25 [Suspect]
     Indication: DIABETES MELLITUS
     Dosage: UNK, UNK
     Route: 058
     Dates: start: 20060301

REACTIONS (3)
  - CONVULSION [None]
  - DIABETES MELLITUS INSULIN-DEPENDENT [None]
  - HYPOGLYCAEMIA [None]
